FAERS Safety Report 18022611 (Version 24)
Quarter: 2022Q3

REPORT INFORMATION
  Report Type: Spontaneous
  Country: GB (occurrence: GB)
  Receive Date: 20200715
  Receipt Date: 20220915
  Transmission Date: 20221027
  Serious: Yes (Hospitalization, Other)
  Sender: FDA-Public Use
  Company Number: GB-MYLANLABS-2020M1060756

PATIENT
  Sex: Male

DRUGS (24)
  1. ABACAVIR [Suspect]
     Active Substance: ABACAVIR
     Indication: Product used for unknown indication
     Dosage: 300 MILLIGRAM, ONCE A DAY (STRENGTH 300, OD)
     Route: 065
  2. ABACAVIR [Suspect]
     Active Substance: ABACAVIR
     Dosage: 600 MILLIGRAM, ONCE A DAY (600 MILLIGRAM, QD)
     Route: 065
  3. ABACAVIR [Suspect]
     Active Substance: ABACAVIR
     Dosage: 1 DOSAGE FORM, ONCE A DAY (STRENGTH 300, OD)
     Route: 065
  4. ABACAVIR [Suspect]
     Active Substance: ABACAVIR
     Dosage: UNK
     Route: 065
  5. EFAVIRENZ [Suspect]
     Active Substance: EFAVIRENZ
     Indication: Product used for unknown indication
     Dosage: 600 MILLIGRAM, ONCE A DAY
     Route: 065
  6. EFAVIRENZ [Suspect]
     Active Substance: EFAVIRENZ
     Dosage: 300 MILLIGRAM, ONCE A DAY
     Route: 065
  7. EFAVIRENZ [Suspect]
     Active Substance: EFAVIRENZ
     Dosage: 1 DOSAGE FORM, ONCE A DAY
     Route: 065
  8. EFAVIRENZ [Suspect]
     Active Substance: EFAVIRENZ
     Dosage: UNK
     Route: 065
  9. LAMIVUDINE [Suspect]
     Active Substance: LAMIVUDINE
     Indication: Product used for unknown indication
     Dosage: 100 MILLIGRAM, ONCE A DAY(100 MG, QD )STRENGTH 100, OD
     Route: 065
  10. LAMIVUDINE [Suspect]
     Active Substance: LAMIVUDINE
     Dosage: 300 MILLIGRAM, ONCE A DAY(300 MG, QD )
     Route: 065
  11. LAMIVUDINE [Suspect]
     Active Substance: LAMIVUDINE
     Dosage: 600 MILLIGRAM, ONCE A DAY
     Route: 065
  12. ABACAVIR [Suspect]
     Active Substance: ABACAVIR
     Indication: Product used for unknown indication
     Dosage: 600 MILLIGRAM, ONCE A DAY
     Route: 065
  13. ABACAVIR [Suspect]
     Active Substance: ABACAVIR
     Dosage: 300 MILLIGRAM, ONCE A DAY
     Route: 065
  14. ABACAVIR [Suspect]
     Active Substance: ABACAVIR
     Dosage: UNK UNK, ONCE A DAY, (QD ,300 MG)
     Route: 065
  15. ABACAVIR [Suspect]
     Active Substance: ABACAVIR
     Dosage: 300 DOSAGE FORM, ONCE A DAY
     Route: 065
  16. ABACAVIR [Suspect]
     Active Substance: ABACAVIR
     Dosage: 600 DOSAGE FORM, ONCE A DAY
     Route: 065
  17. ABACAVIR SULFATE [Suspect]
     Active Substance: ABACAVIR SULFATE
     Indication: Product used for unknown indication
     Dosage: 300 MILLIGRAM, ONCE A DAY
     Route: 065
  18. ABACAVIR SULFATE [Suspect]
     Active Substance: ABACAVIR SULFATE
     Dosage: 600 MILLIGRAM, ONCE A DAY
     Route: 065
  19. ABACAVIR SULFATE [Suspect]
     Active Substance: ABACAVIR SULFATE
     Dosage: 1 DOSAGE FORM, ONCE A DAY
     Route: 065
  20. LAMIVUDINE [Suspect]
     Active Substance: LAMIVUDINE
     Indication: Product used for unknown indication
     Dosage: 100 MILLIGRAM, ONCE A DAY
     Route: 065
  21. LAMIVUDINE [Suspect]
     Active Substance: LAMIVUDINE
     Dosage: 300 MILLIGRAM, ONCE A DAY (QD (STRENGTH 300, OD 1 1 D 300MG) , UNIT DOSE : 300 MG )
     Route: 065
  22. LAMIVUDINE [Suspect]
     Active Substance: LAMIVUDINE
     Dosage: 600 MILLIGRAM, ONCE A DAY
     Route: 065
  23. LAMIVUDINE [Suspect]
     Active Substance: LAMIVUDINE
     Dosage: ONCE A DAY
     Route: 065
  24. LAMIVUDINE [Suspect]
     Active Substance: LAMIVUDINE
     Dosage: UNK
     Route: 065

REACTIONS (7)
  - Lung neoplasm malignant [Unknown]
  - Lung cancer metastatic [Unknown]
  - Metastases to central nervous system [Unknown]
  - Malaise [Unknown]
  - Hospitalisation [Unknown]
  - Feeling abnormal [Unknown]
  - Life expectancy shortened [Not Recovered/Not Resolved]
